FAERS Safety Report 17316135 (Version 1)
Quarter: 2020Q1

REPORT INFORMATION
  Report Type: Spontaneous
  Country: US (occurrence: US)
  Receive Date: 20200124
  Receipt Date: 20200124
  Transmission Date: 20200409
  Serious: No
  Sender: FDA-Public Use
  Company Number: US-SUNOVION-2020SUN000119

PATIENT
  Sex: Female

DRUGS (1)
  1. LATUDA [Suspect]
     Active Substance: LURASIDONE HYDROCHLORIDE
     Dosage: 20 MG
     Route: 048

REACTIONS (6)
  - Impulsive behaviour [Unknown]
  - Mood altered [Unknown]
  - Amnesia [Unknown]
  - Anger [Unknown]
  - Abnormal behaviour [Unknown]
  - Disturbance in attention [Unknown]
